FAERS Safety Report 9948042 (Version 1)
Quarter: 2014Q1

REPORT INFORMATION
  Report Type: Report from Study
  Country: US (occurrence: US)
  Receive Date: 20140303
  Receipt Date: 20140303
  Transmission Date: 20141002
  Serious: No
  Sender: FDA-Public Use
  Company Number: US-ABBVIE-13P-163-1055940-00

PATIENT
  Age: 23 Year
  Sex: Female

DRUGS (4)
  1. HUMIRA [Suspect]
     Indication: PSORIATIC ARTHROPATHY
     Route: 058
  2. TRI-SPRINTEC [Concomitant]
     Indication: ORAL CONTRACEPTION
  3. TRIAMCINOLONE [Concomitant]
     Indication: PSORIASIS
  4. UV LIGHT THERAPY [Concomitant]
     Indication: PSORIASIS

REACTIONS (2)
  - Toothache [Not Recovered/Not Resolved]
  - Tooth abscess [Not Recovered/Not Resolved]
